FAERS Safety Report 7979195-9 (Version None)
Quarter: 2011Q4

REPORT INFORMATION
  Report Type: 
  Country: None (occurrence: None)
  Receive Date: 20111214
  Receipt Date: 20111207
  Transmission Date: 20120403
  Serious: Yes (Hospitalization)
  Sender: FDA-Public Use
  Company Number: DK-JNJFOC-20111104691

PATIENT
  Sex: Male
  Weight: 81 kg

DRUGS (31)
  1. DOXORUBICIN HCL [Suspect]
     Route: 042
     Dates: start: 20110426
  2. NEUPOGEN [Suspect]
     Indication: DIFFUSE LARGE B-CELL LYMPHOMA
     Route: 058
     Dates: start: 20110427
  3. RITUXIMAB [Suspect]
     Route: 042
     Dates: start: 20110702
  4. RITUXIMAB [Suspect]
     Route: 042
     Dates: start: 20110426
  5. VINCRISTINE [Suspect]
     Indication: DIFFUSE LARGE B-CELL LYMPHOMA
     Route: 042
     Dates: start: 20110426
  6. VINCRISTINE [Suspect]
     Route: 042
     Dates: start: 20110803
  7. NEUPOGEN [Suspect]
     Route: 058
     Dates: start: 20110804
  8. FUROSEMIDE [Concomitant]
     Indication: POLYURIA
     Route: 048
  9. CYCLOPHOSPHAMIDE [Suspect]
     Indication: DIFFUSE LARGE B-CELL LYMPHOMA
     Route: 042
     Dates: start: 20110803
  10. RITUXIMAB [Suspect]
     Indication: DIFFUSE LARGE B-CELL LYMPHOMA
     Route: 042
     Dates: start: 20110503
  11. ACYCLOVIR [Concomitant]
     Indication: PROPHYLAXIS
     Route: 048
     Dates: start: 20110412
  12. ALLOPURINOL [Concomitant]
     Indication: PROPHYLAXIS
     Route: 048
     Dates: start: 20110412, end: 20110708
  13. CYCLOPHOSPHAMIDE [Suspect]
     Route: 042
     Dates: start: 20110426
  14. ENOXAPARIN SODIUM [Concomitant]
     Indication: PAIN
     Route: 058
     Dates: start: 20110826
  15. LACTULOSE [Concomitant]
     Indication: CONSTIPATION
     Route: 048
  16. PREDNISONE TAB [Suspect]
     Indication: DIFFUSE LARGE B-CELL LYMPHOMA
     Route: 048
     Dates: start: 20110426
  17. RITUXIMAB [Suspect]
     Route: 042
     Dates: start: 20110803
  18. AMLODIPINE [Concomitant]
     Indication: HYPERTENSION
     Route: 048
  19. DOXORUBICIN HCL [Suspect]
     Indication: DIFFUSE LARGE B-CELL LYMPHOMA
     Route: 042
     Dates: start: 20110628
  20. NEUPOGEN [Suspect]
     Route: 058
     Dates: start: 20110629
  21. PREDNISONE TAB [Suspect]
     Route: 048
     Dates: start: 20110803
  22. VINCRISTINE [Suspect]
     Route: 042
     Dates: start: 20110628
  23. LANSOPRAZOLE [Concomitant]
     Indication: PROPHYLAXIS
     Route: 048
  24. MOVIPREP [Concomitant]
     Indication: CONSTIPATION
     Route: 065
  25. SENNOSIDE [Concomitant]
     Indication: PRODUCT USED FOR UNKNOWN INDICATION
     Route: 065
  26. SULFAMETHOXAZOL AND TRIMETHOPRIM [Concomitant]
     Indication: PROPHYLAXIS
     Route: 048
     Dates: start: 20110628
  27. DOXORUBICIN HCL [Suspect]
     Route: 042
     Dates: start: 20110803
  28. CYCLOPHOSPHAMIDE [Suspect]
     Route: 042
     Dates: start: 20110628
  29. PREDNISONE TAB [Suspect]
     Route: 048
     Dates: start: 20110628
  30. RITUXIMAB [Suspect]
     Route: 042
     Dates: start: 20110628
  31. MORPHINE [Concomitant]
     Indication: PAIN
     Route: 048

REACTIONS (5)
  - FEBRILE NEUTROPENIA [None]
  - PNEUMONIA [None]
  - PULMONARY EMBOLISM [None]
  - PYREXIA [None]
  - MUSCLE RUPTURE [None]
